FAERS Safety Report 4480306-0 (Version None)
Quarter: 2004Q3

REPORT INFORMATION
  Report Type: 
  Country: None (occurrence: None)
  Receive Date: 20040923
  Receipt Date: 20040625
  Transmission Date: 20050211
  Serious: No
  Sender: FDA-Public Use
  Company Number: USA030845539

PATIENT
  Age: 81 Year
  Sex: Female

DRUGS (1)
  1. FORTEO [Suspect]
     Indication: OSTEOPOROSIS
     Dosage: 20 UG DAY
     Dates: start: 20030819, end: 20040501

REACTIONS (3)
  - HYPOAESTHESIA [None]
  - INJECTION SITE HAEMORRHAGE [None]
  - SENSORY DISTURBANCE [None]
